FAERS Safety Report 20338683 (Version 4)
Quarter: 2022Q1

REPORT INFORMATION
  Report Type: Report from Study
  Country: IL (occurrence: None)
  Receive Date: 20220116
  Receipt Date: 20220308
  Transmission Date: 20220423
  Serious: Yes (Death, Hospitalization, Other)
  Sender: FDA-Public Use
  Company Number: IL-ROCHE-2990124

PATIENT
  Age: 85 Year
  Sex: Male
  Weight: 81 kg

DRUGS (16)
  1. ATEZOLIZUMAB [Suspect]
     Active Substance: ATEZOLIZUMAB
     Indication: Non-small cell lung cancer
     Dosage: ON 15-NOV-2021, MOST RECENT DOSE OF STUDY DRUG PRIOR TO AE AND SAE.
     Route: 041
     Dates: start: 20180228
  2. ROSUVASTATIN [Concomitant]
     Active Substance: ROSUVASTATIN
     Indication: Hypercholesterolaemia
     Route: 048
     Dates: start: 2017
  3. METFORMIN [Concomitant]
     Active Substance: METFORMIN HYDROCHLORIDE
     Indication: Diabetes mellitus
     Dates: start: 2016
  4. VERAPAMIL [Concomitant]
     Active Substance: VERAPAMIL HYDROCHLORIDE
     Indication: Hypertension
     Route: 048
     Dates: start: 2008
  5. DORZOLAMIDE [Concomitant]
     Active Substance: DORZOLAMIDE
     Indication: Retinal degeneration
     Route: 047
     Dates: start: 2008
  6. DIETARY SUPPLEMENT\UBIDECARENONE [Concomitant]
     Active Substance: DIETARY SUPPLEMENT\UBIDECARENONE
     Route: 048
     Dates: start: 20170101
  7. MAGNESIUM [Concomitant]
     Active Substance: MAGNESIUM
     Route: 048
     Dates: start: 2013
  8. CADEX (ISRAEL) [Concomitant]
     Indication: Hypertension
     Route: 048
     Dates: start: 20181212
  9. CANDOR PLUS [Concomitant]
     Indication: Hypertension
     Route: 048
     Dates: start: 20190328
  10. MAXITROL [Concomitant]
     Active Substance: DEXAMETHASONE\NEOMYCIN SULFATE\POLYMYXIN B SULFATE
     Indication: Lacrimation increased
     Dosage: 1 OTHER
     Route: 047
     Dates: start: 20210216
  11. MAXITROL [Concomitant]
     Active Substance: DEXAMETHASONE\NEOMYCIN SULFATE\POLYMYXIN B SULFATE
     Route: 047
     Dates: start: 20210216
  12. BRONCHO D [Concomitant]
     Indication: Rhinorrhoea
     Dosage: 1 TBSP
     Route: 048
     Dates: start: 20210426
  13. CLINDAMYCIN [Concomitant]
     Active Substance: CLINDAMYCIN
     Indication: Arthralgia
     Route: 048
     Dates: start: 20210527
  14. LEVOFLOXACIN [Concomitant]
     Active Substance: LEVOFLOXACIN
     Indication: Rhinorrhoea
     Route: 048
     Dates: start: 20210607, end: 20210614
  15. FOSTER [Concomitant]
     Active Substance: BECLOMETHASONE\FORMOTEROL
  16. INFLUENZA VIRUS VACCINE [Concomitant]
     Active Substance: INFLUENZA VIRUS VACCINE

REACTIONS (2)
  - Pneumonia [Not Recovered/Not Resolved]
  - COVID-19 [Fatal]

NARRATIVE: CASE EVENT DATE: 20210104
